FAERS Safety Report 21891538 (Version 1)
Quarter: 2023Q1

REPORT INFORMATION
  Report Type: Spontaneous
  Country: US (occurrence: US)
  Receive Date: 20230120
  Receipt Date: 20230120
  Transmission Date: 20230418
  Serious: Yes (Death, Other)
  Sender: FDA-Public Use
  Company Number: US-002147023-NVSC2023US013341

PATIENT
  Age: 81 Year

DRUGS (1)
  1. NITROFURANTOIN [Suspect]
     Active Substance: NITROFURANTOIN
     Indication: Product used for unknown indication
     Dosage: UNK (LONG TERM USE)
     Route: 065

REACTIONS (2)
  - Pulmonary fibrosis [Fatal]
  - Drug-induced liver injury [Unknown]
